FAERS Safety Report 18346886 (Version 1)
Quarter: 2020Q4

REPORT INFORMATION
  Report Type: Spontaneous
  Country: US (occurrence: US)
  Receive Date: 20201005
  Receipt Date: 20201005
  Transmission Date: 20210114
  Serious: No
  Sender: FDA-Public Use
  Company Number: US-VIFOR (INTERNATIONAL) INC.-VIT-2017-00108

PATIENT
  Age: 70 Year
  Sex: Male

DRUGS (14)
  1. VELTASSA [Suspect]
     Active Substance: PATIROMER
     Route: 048
     Dates: start: 201608
  2. VITAMIN C [Concomitant]
     Active Substance: ASCORBIC ACID
  3. OMEGA 3 [Concomitant]
     Active Substance: OMEGA-3 FATTY ACIDS
  4. ASIPRIN 81 [Concomitant]
  5. KRILL OIL [Concomitant]
     Active Substance: DIETARY SUPPLEMENT\KRILL OIL
  6. CLOPIDOGREL BISULFATE. [Concomitant]
     Active Substance: CLOPIDOGREL BISULFATE
  7. VELTASSA [Suspect]
     Active Substance: PATIROMER
     Indication: HYPERKALAEMIA
     Route: 048
     Dates: start: 20160805
  8. ENBREL [Concomitant]
     Active Substance: ETANERCEPT
  9. AUGMENTIN [Concomitant]
     Active Substance: AMOXICILLIN\CLAVULANATE POTASSIUM
  10. TOUJEO [Concomitant]
     Active Substance: INSULIN GLARGINE
  11. SODIUM BICARBONATE. [Concomitant]
     Active Substance: SODIUM BICARBONATE
  12. CARVEDILOL. [Concomitant]
     Active Substance: CARVEDILOL
  13. SIMVASTATIN. [Concomitant]
     Active Substance: SIMVASTATIN
  14. NEXIUM [Concomitant]
     Active Substance: ESOMEPRAZOLE MAGNESIUM

REACTIONS (2)
  - Sinusitis [Unknown]
  - Cardioversion [Unknown]

NARRATIVE: CASE EVENT DATE: 20161226
